FAERS Safety Report 20627938 (Version 1)
Quarter: 2022Q1

REPORT INFORMATION
  Report Type: Spontaneous
  Country: BE (occurrence: BE)
  Receive Date: 20220323
  Receipt Date: 20220323
  Transmission Date: 20220423
  Serious: Yes (Disabling)
  Sender: FDA-Public Use
  Company Number: BE-BAUSCH-BL-2022-007328

PATIENT
  Age: 21 Year
  Sex: Female
  Weight: 54 kg

DRUGS (3)
  1. WELLBUTRIN XL [Suspect]
     Active Substance: BUPROPION HYDROCHLORIDE
     Indication: Depression
     Dosage: 1 DF, QD (^IN THE MORNING)
     Route: 048
     Dates: start: 20220210, end: 20220227
  2. ESCITALOPRAM OXALATE [Concomitant]
     Active Substance: ESCITALOPRAM OXALATE
     Indication: Product used for unknown indication
  3. ESTRADIOL\NOMEGESTROL ACETATE [Concomitant]
     Active Substance: ESTRADIOL\NOMEGESTROL ACETATE
     Indication: Product used for unknown indication

REACTIONS (7)
  - Dyspepsia [Recovering/Resolving]
  - Decreased appetite [Recovering/Resolving]
  - Gastrooesophageal reflux disease [Recovering/Resolving]
  - Chills [Recovering/Resolving]
  - Headache [Recovering/Resolving]
  - Abdominal pain upper [Recovering/Resolving]
  - Nausea [Recovering/Resolving]

NARRATIVE: CASE EVENT DATE: 20220210
